FAERS Safety Report 11523771 (Version 1)
Quarter: 2015Q3

REPORT INFORMATION
  Report Type: Spontaneous
  Country: US (occurrence: US)
  Receive Date: 20150903
  Receipt Date: 20150903
  Transmission Date: 20151125
  Serious: Yes (Other)
  Sender: FDA-Public Use
  Company Number: US-ELI_LILLY_AND_COMPANY-US201304002576

PATIENT
  Age: 43 Year
  Sex: Female

DRUGS (4)
  1. EFFEXOR [Concomitant]
     Active Substance: VENLAFAXINE HYDROCHLORIDE
  2. CYMBALTA [Suspect]
     Active Substance: DULOXETINE HYDROCHLORIDE
     Indication: DEPRESSION
     Dosage: 60 MG, BID
     Dates: start: 20120312
  3. SEROQUEL [Concomitant]
     Active Substance: QUETIAPINE FUMARATE
  4. DEPLIN [Concomitant]
     Active Substance: LEVOMEFOLATE CALCIUM

REACTIONS (1)
  - Blood pressure increased [Unknown]
